FAERS Safety Report 10451111 (Version 3)
Quarter: 2014Q4

REPORT INFORMATION
  Report Type: Spontaneous
  Country: US (occurrence: US)
  Receive Date: 20140912
  Receipt Date: 20141009
  Transmission Date: 20150528
  Serious: Yes (Other)
  Sender: FDA-Public Use
  Company Number: ALCN2014US005092

PATIENT
  Age: 74 Year
  Sex: Male
  Weight: 79.82 kg

DRUGS (4)
  1. EPINEPHRINE. [Concomitant]
     Active Substance: EPINEPHRINE
     Indication: INTRAOCULAR LENS IMPLANT
     Dosage: UNK
     Route: 065
     Dates: start: 20140828, end: 20140828
  2. BSS [Suspect]
     Active Substance: CALCIUM CHLORIDE\MAGNESIUM CHLORIDE\POTASSIUM CHLORIDE\SODIUM ACETATE\SODIUM CHLORIDE\SODIUM CITRATE
     Indication: INTRAOCULAR LENS IMPLANT
     Dosage: UNK
     Route: 065
     Dates: start: 20140828, end: 20140828
  3. BETADINE [Suspect]
     Active Substance: POVIDONE-IODINE
     Indication: INTRAOCULAR LENS IMPLANT
     Dosage: UNK
     Route: 047
     Dates: start: 20140828, end: 20140828
  4. TETRACAINE STERI-UNITS [Suspect]
     Active Substance: TETRACAINE\TETRACAINE HYDROCHLORIDE
     Indication: INTRAOCULAR LENS IMPLANT
     Dosage: UNK
     Route: 047
     Dates: start: 20140828, end: 20140828

REACTIONS (2)
  - Off label use [Unknown]
  - Endophthalmitis [Not Recovered/Not Resolved]

NARRATIVE: CASE EVENT DATE: 20140904
